FAERS Safety Report 6878137-7 (Version None)
Quarter: 2010Q2

REPORT INFORMATION
  Report Type: 
  Country: None (occurrence: None)
  Receive Date: 20100622
  Receipt Date: 20100312
  Transmission Date: 20101027
  Serious: No
  Sender: FDA-Public Use
  Company Number: 2010US000016

PATIENT
  Age: 71 Year
  Sex: Female

DRUGS (8)
  1. ENTEREG [Suspect]
     Indication: POSTOPERATIVE ILEUS
     Dosage: 12 MG; BID; PO
     Route: 048
     Dates: start: 20100310, end: 20100311
  2. CLONAZEPAM [Concomitant]
  3. WELLBUTRIN [Concomitant]
  4. SIMVASTATIN [Concomitant]
  5. HYDROMORPHONE [Concomitant]
  6. AMBIEN [Concomitant]
  7. OXYCODONE HCL AND ACETAMINOPHEN [Concomitant]
  8. KETOROLAC [Concomitant]

REACTIONS (2)
  - NAUSEA [None]
  - VOMITING [None]
